FAERS Safety Report 7477055-3 (Version None)
Quarter: 2011Q2

REPORT INFORMATION
  Report Type: 
  Country: None (occurrence: None)
  Receive Date: 20110512
  Receipt Date: 20110504
  Transmission Date: 20111010
  Serious: Yes (Hospitalization, Disabling, Other)
  Sender: FDA-Public Use
  Company Number: US-MERCK-1009USA00050

PATIENT
  Age: 73 Year
  Sex: Female
  Weight: 81 kg

DRUGS (2)
  1. ACTONEL [Suspect]
     Indication: OSTEOPOROSIS
     Route: 048
     Dates: start: 20061013, end: 20080701
  2. FOSAMAX [Suspect]
     Indication: OSTEOPOROSIS
     Route: 048
     Dates: start: 20010626, end: 20060101

REACTIONS (51)
  - HELICOBACTER TEST POSITIVE [None]
  - DEPRESSION [None]
  - ORTHOPNOEA [None]
  - ARTERIOSCLEROSIS CORONARY ARTERY [None]
  - SPONDYLOLISTHESIS [None]
  - DYSPHAGIA [None]
  - MENISCUS LESION [None]
  - BACK DISORDER [None]
  - CATARACT [None]
  - EPIGASTRIC DISCOMFORT [None]
  - VISUAL IMPAIRMENT [None]
  - PAIN IN EXTREMITY [None]
  - HYPOTENSION [None]
  - OSTEONECROSIS OF JAW [None]
  - CHEST PAIN [None]
  - COLONIC POLYP [None]
  - NAUSEA [None]
  - WEIGHT INCREASED [None]
  - HEARING IMPAIRED [None]
  - DUODENAL ULCER [None]
  - LACERATION [None]
  - ANGINA PECTORIS [None]
  - SPINAL DISORDER [None]
  - BACK PAIN [None]
  - FOOT FRACTURE [None]
  - DYSPEPSIA [None]
  - OBESITY [None]
  - INTERVERTEBRAL DISC DEGENERATION [None]
  - GASTRITIS [None]
  - OSTEOARTHRITIS [None]
  - DENTAL CARIES [None]
  - URINARY TRACT INFECTION [None]
  - SCIATICA [None]
  - ROTATOR CUFF SYNDROME [None]
  - NEPHROLITHIASIS [None]
  - NEURALGIA [None]
  - ANXIETY [None]
  - OCCULT BLOOD POSITIVE [None]
  - VOMITING [None]
  - MUSCULOSKELETAL PAIN [None]
  - TINNITUS [None]
  - LUMBAR SPINAL STENOSIS [None]
  - BONE DISORDER [None]
  - GASTROOESOPHAGEAL REFLUX DISEASE [None]
  - ANKLE FRACTURE [None]
  - ABDOMINAL PAIN [None]
  - ANAEMIA [None]
  - TOOTH ABSCESS [None]
  - FOOT DEFORMITY [None]
  - DYSPNOEA [None]
  - MIXED HYPERLIPIDAEMIA [None]
